FAERS Safety Report 6931317-4 (Version None)
Quarter: 2010Q3

REPORT INFORMATION
  Report Type: 
  Country: None (occurrence: None)
  Receive Date: 20100818
  Receipt Date: 20100804
  Transmission Date: 20110219
  Serious: Yes (Other)
  Sender: FDA-Public Use
  Company Number: PHHY2010FR52831

PATIENT
  Sex: Female
  Weight: 60.5 kg

DRUGS (3)
  1. NEORAL [Suspect]
     Indication: PROPHYLAXIS AGAINST TRANSPLANT REJECTION
     Dosage: 130 MG DAILY
     Dates: start: 20071231
  2. NEORAL [Suspect]
     Dosage: 140 MG DAILY
     Dates: start: 20100316
  3. IMUREL [Concomitant]
     Indication: RENAL TRANSPLANT
     Dosage: 75 MG
     Dates: start: 20090723

REACTIONS (3)
  - ABORTION INDUCED [None]
  - DRUG EXPOSURE DURING PREGNANCY [None]
  - PREGNANCY [None]
